FAERS Safety Report 6180477-4 (Version None)
Quarter: 2009Q2

REPORT INFORMATION
  Report Type: 
  Country: None (occurrence: None)
  Receive Date: 20090506
  Receipt Date: 20090424
  Transmission Date: 20091009
  Serious: No
  Sender: FDA-Public Use
  Company Number: PHEH2009US04380

PATIENT
  Sex: Female

DRUGS (3)
  1. TASIGNA [Suspect]
     Dosage: 800 MG QD
     Dates: start: 20081121
  2. TASIGNA [Suspect]
     Dosage: 200 MG, BID
     Route: 048
  3. TASIGNA [Suspect]
     Dosage: 400 MG QD

REACTIONS (2)
  - MEDICATION ERROR [None]
  - WHITE BLOOD CELL COUNT DECREASED [None]
